FAERS Safety Report 9530933 (Version 1)
Quarter: 2013Q3

REPORT INFORMATION
  Report Type: Spontaneous
  Country: US (occurrence: None)
  Receive Date: 20130916
  Receipt Date: 20130916
  Transmission Date: 20140515
  Serious: Yes (Hospitalization)
  Sender: FDA-Public Use
  Company Number: None

PATIENT
  Age: 52 None
  Sex: Male
  Weight: 105.4 kg

DRUGS (1)
  1. LOSARTAN [Suspect]
     Indication: HYPERTENSION
     Route: 048
     Dates: start: 20130404, end: 20130703

REACTIONS (6)
  - Palatal oedema [None]
  - Mouth ulceration [None]
  - Angioedema [None]
  - Mouth ulceration [None]
  - Gingival erythema [None]
  - Erythema [None]
